FAERS Safety Report 12173578 (Version 1)
Quarter: 2016Q1

REPORT INFORMATION
  Report Type: Spontaneous
  Country: US (occurrence: None)
  Receive Date: 20160311
  Receipt Date: 20160311
  Transmission Date: 20160526
  Serious: Yes (Other)
  Sender: FDA-Public Use
  Company Number: None

PATIENT
  Age: 53 Year
  Sex: Female
  Weight: 0 kg

DRUGS (1)
  1. HUMIRA [Suspect]
     Active Substance: ADALIMUMAB
     Dosage: SUBCUTANEOUS 057 40 INJECTABLE
     Route: 058

REACTIONS (3)
  - Liver function test increased [None]
  - Condition aggravated [None]
  - Inflammation [None]

NARRATIVE: CASE EVENT DATE: 20160310
